FAERS Safety Report 4507001-3 (Version None)
Quarter: 2004Q4

REPORT INFORMATION
  Report Type: 
  Country: None (occurrence: None)
  Receive Date: 20041117
  Receipt Date: 20041105
  Transmission Date: 20050328
  Serious: Yes (Hospitalization)
  Sender: FDA-Public Use
  Company Number: 2004-UK-01159UK

PATIENT
  Age: 63 Year
  Sex: Male

DRUGS (3)
  1. AGGRENOX [Suspect]
     Indication: CEREBROVASCULAR ACCIDENT PROPHYLAXIS
     Dosage: 2 ANZ TWICE DAILY PO
     Route: 048
     Dates: start: 20040720, end: 20040930
  2. MICARDIS [Suspect]
     Indication: CEREBROVASCULAR ACCIDENT PROPHYLAXIS
     Dosage: 1 ANZ  ONCE DAILY PO
     Route: 048
     Dates: start: 20040720, end: 20040824
  3. ENALAPRIL MALEATE [Suspect]
     Dosage: 7.5 MG PO
     Route: 048
     Dates: start: 20040522

REACTIONS (2)
  - CREATININE RENAL CLEARANCE DECREASED [None]
  - PROTEINURIA [None]
